FAERS Safety Report 6341458-0 (Version None)
Quarter: 2009Q3

REPORT INFORMATION
  Report Type: 
  Country: None (occurrence: None)
  Receive Date: 20090904
  Receipt Date: 20090831
  Transmission Date: 20100115
  Serious: Yes (Hospitalization)
  Sender: FDA-Public Use
  Company Number: FR-ABBOTT-09P-056-0590604-00

PATIENT
  Age: 31 Year
  Sex: Male
  Weight: 55 kg

DRUGS (23)
  1. KALETRA [Suspect]
     Indication: HIV INFECTION
     Route: 048
     Dates: start: 20080709, end: 20081007
  2. TRUVADA [Concomitant]
     Indication: DRUG USE FOR UNKNOWN INDICATION
     Dates: start: 20080709
  3. ROVALCYTE [Concomitant]
     Indication: DRUG USE FOR UNKNOWN INDICATION
     Route: 048
     Dates: start: 20080705
  4. BACTRIM [Concomitant]
     Indication: DRUG USE FOR UNKNOWN INDICATION
     Route: 048
     Dates: start: 20080624
  5. ANZATIPINE [Concomitant]
     Indication: MYCOBACTERIAL INFECTION
  6. MYALBUTOL [Concomitant]
     Indication: MYCOBACTERIAL INFECTION
  7. ZECLAR [Concomitant]
     Indication: MYCOBACTERIAL INFECTION
     Route: 048
     Dates: start: 20080703
  8. DOLIPRANE [Concomitant]
     Indication: PROPHYLAXIS
     Route: 048
     Dates: start: 20080709
  9. FOLINORAL [Concomitant]
     Indication: ANAEMIA
     Route: 048
     Dates: start: 20080704
  10. PRIMPERAN [Concomitant]
     Indication: NAUSEA
     Dates: start: 20080717
  11. ZIAGEN [Concomitant]
     Indication: DRUG USE FOR UNKNOWN INDICATION
  12. EPIVIR [Concomitant]
     Indication: DRUG USE FOR UNKNOWN INDICATION
  13. FUZEON [Concomitant]
     Indication: DRUG USE FOR UNKNOWN INDICATION
  14. AZATHIOPRINE [Concomitant]
     Indication: DRUG USE FOR UNKNOWN INDICATION
  15. SOLU-MEDROL [Concomitant]
     Indication: DRUG USE FOR UNKNOWN INDICATION
  16. OFLOCET [Concomitant]
     Indication: DRUG USE FOR UNKNOWN INDICATION
  17. TRIFLUCAN [Concomitant]
     Indication: DRUG USE FOR UNKNOWN INDICATION
  18. MYCODAZOL [Concomitant]
     Indication: DRUG USE FOR UNKNOWN INDICATION
  19. AMIKIN [Concomitant]
     Indication: DRUG USE FOR UNKNOWN INDICATION
  20. MOUTH BATH NOS [Concomitant]
     Indication: DRUG USE FOR UNKNOWN INDICATION
  21. ABACAVIR [Concomitant]
     Indication: DRUG USE FOR UNKNOWN INDICATION
  22. LAMIVUDINE [Concomitant]
     Indication: DRUG USE FOR UNKNOWN INDICATION
  23. ISENTRESS [Concomitant]
     Indication: DRUG USE FOR UNKNOWN INDICATION

REACTIONS (8)
  - GENERAL PHYSICAL CONDITION ABNORMAL [None]
  - IMMUNE RECONSTITUTION SYNDROME [None]
  - OESOPHAGEAL CANDIDIASIS [None]
  - ORAL CANDIDIASIS [None]
  - PANCYTOPENIA [None]
  - PERITONITIS [None]
  - RENAL FAILURE [None]
  - TUBULOINTERSTITIAL NEPHRITIS [None]
